FAERS Safety Report 7581267-8 (Version None)
Quarter: 2011Q2

REPORT INFORMATION
  Report Type: 
  Country: None (occurrence: None)
  Receive Date: 20110629
  Receipt Date: 20110629
  Transmission Date: 20111010
  Serious: Yes (Hospitalization)
  Sender: FDA-Public Use
  Company Number: US-ROXANE LABORATORIES, INC.-2008-BP-08722RO

PATIENT
  Sex: Male
  Weight: 84 kg

DRUGS (1)
  1. DEXAMETHASONE [Suspect]
     Route: 048
     Dates: end: 20060125

REACTIONS (3)
  - MENTAL STATUS CHANGES [None]
  - PNEUMONIA [None]
  - PLEURAL EFFUSION [None]
